FAERS Safety Report 21742379 (Version 6)
Quarter: 2023Q2

REPORT INFORMATION
  Report Type: Spontaneous
  Country: US (occurrence: US)
  Receive Date: 20221216
  Receipt Date: 20230629
  Transmission Date: 20230722
  Serious: Yes (Other)
  Sender: FDA-Public Use
  Company Number: US-XERIS PHARMACEUTICALS-2022XER00368

PATIENT
  Sex: Female

DRUGS (7)
  1. RECORLEV [Suspect]
     Active Substance: LEVOKETOCONAZOLE
     Indication: Ectopic ACTH syndrome
     Dosage: UNK
     Dates: start: 202209, end: 2022
  2. RECORLEV [Suspect]
     Active Substance: LEVOKETOCONAZOLE
     Dosage: ^ONE OF THE RECORLEV^ (150 MG), 1X/DAY
     Route: 048
     Dates: start: 2022, end: 2022
  3. RECORLEV [Suspect]
     Active Substance: LEVOKETOCONAZOLE
     Dosage: 1 TABLET (150 MG), 2X/DAY WITH OR WITHOUT FOOD
     Route: 048
     Dates: start: 2022, end: 20230105
  4. RECORLEV [Suspect]
     Active Substance: LEVOKETOCONAZOLE
     Dosage: 3 TABLETS (450 MG), EVERY DAY
     Route: 048
     Dates: start: 20230106
  5. RECORLEV [Suspect]
     Active Substance: LEVOKETOCONAZOLE
     Dosage: TWO TABLETS (300 MG), 1X/DAY IN THE MORNING
     Route: 048
  6. RECORLEV [Suspect]
     Active Substance: LEVOKETOCONAZOLE
     Dosage: ONE TABLET (150 MG), 1X/DAY AT NIGHT
     Route: 048
  7. RECORLEV [Suspect]
     Active Substance: LEVOKETOCONAZOLE
     Dosage: 3 TABLETS (450 MG), EVERY DAY
     Route: 048

REACTIONS (23)
  - Nausea [Not Recovered/Not Resolved]
  - Vomiting [Not Recovered/Not Resolved]
  - Fatigue [Recovering/Resolving]
  - Ocular hyperaemia [Recovering/Resolving]
  - Sinus disorder [Recovering/Resolving]
  - Rhinorrhoea [Recovering/Resolving]
  - Cortisol increased [Not Recovered/Not Resolved]
  - Muscle spasms [Unknown]
  - Thirst [Unknown]
  - Weight decreased [Unknown]
  - Hyponatraemia [Recovering/Resolving]
  - Feeling abnormal [Recovering/Resolving]
  - Gastrooesophageal reflux disease [Recovering/Resolving]
  - Drug hypersensitivity [Recovering/Resolving]
  - Erythema [Recovered/Resolved]
  - Cortisol decreased [Unknown]
  - Hypersensitivity [Recovering/Resolving]
  - Dizziness [Unknown]
  - Headache [Recovering/Resolving]
  - Flushing [Recovered/Resolved]
  - Dyspepsia [Recovering/Resolving]
  - Middle insomnia [Unknown]
  - Abdominal discomfort [Unknown]

NARRATIVE: CASE EVENT DATE: 20220101
